FAERS Safety Report 4895165-1 (Version None)
Quarter: 2006Q1

REPORT INFORMATION
  Report Type: 
  Country: None (occurrence: None)
  Receive Date: 20060130
  Receipt Date: 20060119
  Transmission Date: 20060701
  Serious: Yes (Other)
  Sender: FDA-Public Use
  Company Number: DE-JNJFOC-20051001950

PATIENT
  Sex: Female
  Weight: 62 kg

DRUGS (2)
  1. RISPERDAL [Suspect]
     Indication: DRUG USE FOR UNKNOWN INDICATION
     Dosage: 10 TABLETS OF 1 MG
     Route: 048
  2. CITALOPRAM HYDROBROMIDE [Suspect]
     Indication: DRUG USE FOR UNKNOWN INDICATION
     Dosage: 28 TABLETS OF 20 MG = 560 MG
     Route: 048

REACTIONS (5)
  - ACIDOSIS [None]
  - CONVULSION [None]
  - FATIGUE [None]
  - OVERDOSE [None]
  - SUICIDE ATTEMPT [None]
